FAERS Safety Report 12537410 (Version 1)
Quarter: 2016Q3

REPORT INFORMATION
  Report Type: Report from Study
  Country: BR (occurrence: BR)
  Receive Date: 20160707
  Receipt Date: 20160707
  Transmission Date: 20161109
  Serious: Yes (Death)
  Sender: FDA-Public Use
  Company Number: PHHY2016BR091297

PATIENT
  Sex: Male

DRUGS (1)
  1. ZOTEON [Suspect]
     Active Substance: TOBRAMYCIN
     Indication: CYSTIC FIBROSIS
     Dosage: 4 DF, BID (4 CAPSULES IN THE MORNING AN 4 AT NIGHT) (1 MONTH ON/1 MONTH OFF)
     Route: 055

REACTIONS (4)
  - Asthenia [Fatal]
  - Cystic fibrosis [Fatal]
  - Bacterial infection [Fatal]
  - Lung infection [Fatal]
